FAERS Safety Report 8871138 (Version 1)
Quarter: 2012Q4

REPORT INFORMATION
  Report Type: 
  Country: US (occurrence: US)
  Receive Date: 20121023
  Receipt Date: 20121023
  Transmission Date: 20130627
  Serious: No
  Sender: FDA-Public Use
  Company Number: US-AMGEN-USASP2011063001

PATIENT
  Sex: Male

DRUGS (1)
  1. ENBREL [Suspect]
     Indication: RHEUMATOID ARTHRITIS
     Dates: start: 20101118, end: 201105

REACTIONS (4)
  - Impaired healing [Not Recovered/Not Resolved]
  - Therapeutic response decreased [Unknown]
  - Wound infection [Recovered/Resolved]
  - Drug hypersensitivity [Not Recovered/Not Resolved]
